FAERS Safety Report 23955318 (Version 2)
Quarter: 2025Q1

REPORT INFORMATION
  Report Type: Spontaneous
  Country: JP (occurrence: JP)
  Receive Date: 20240610
  Receipt Date: 20250312
  Transmission Date: 20250408
  Serious: Yes (Death, Hospitalization, Other)
  Sender: TAKEDA
  Company Number: JP-TAKEDA-2024TJP008438

PATIENT
  Age: 64 Year
  Sex: Male
  Weight: 83.2 kg

DRUGS (7)
  1. ALUNBRIG [Suspect]
     Active Substance: BRIGATINIB
     Indication: Lung adenocarcinoma
     Dosage: 180 MILLIGRAM, QD
     Dates: start: 20230215, end: 20240531
  2. AMLODIPINE [Concomitant]
     Active Substance: AMLODIPINE BESYLATE
     Indication: Hypertension
  3. BISOPROLOL FUMARATE [Concomitant]
     Active Substance: BISOPROLOL FUMARATE
  4. LANSOPRAZOLE [Concomitant]
     Active Substance: LANSOPRAZOLE
  5. FEBUXOSTAT [Concomitant]
     Active Substance: FEBUXOSTAT
  6. EDOXABAN TOSYLATE [Concomitant]
     Active Substance: EDOXABAN TOSYLATE
  7. VILDAGLIPTIN [Concomitant]
     Active Substance: VILDAGLIPTIN

REACTIONS (3)
  - Posterior reversible encephalopathy syndrome [Fatal]
  - Blood pressure increased [Unknown]
  - Cerebral infarction [Unknown]

NARRATIVE: CASE EVENT DATE: 20240531
